FAERS Safety Report 18231845 (Version 1)
Quarter: 2020Q3

REPORT INFORMATION
  Report Type: Spontaneous
  Country: FR (occurrence: FR)
  Receive Date: 20200904
  Receipt Date: 20200904
  Transmission Date: 20201103
  Serious: Yes (Hospitalization)
  Sender: FDA-Public Use
  Company Number: FR-TEVA-2020-FR-1822330

PATIENT
  Age: 63 Year
  Sex: Female
  Weight: 109.8 kg

DRUGS (12)
  1. FUROSEMIDE. [Concomitant]
     Active Substance: FUROSEMIDE
  2. PERINDOPRIL [Concomitant]
     Active Substance: PERINDOPRIL
  3. THALIDOMIDE CELGENE 50 MG, GELULE [Suspect]
     Active Substance: THALIDOMIDE
     Indication: PLASMA CELL MYELOMA
     Dosage: 400 MG
     Route: 048
     Dates: start: 20170901, end: 20171222
  4. DIFFU K [Concomitant]
     Active Substance: POTASSIUM CHLORIDE
  5. OXYNORM [Concomitant]
     Active Substance: OXYCODONE HYDROCHLORIDE
  6. BORTEZOMIB EG 2,5 MG/ML, SOLUTION INJECTABLE [Suspect]
     Active Substance: BORTEZOMIB
     Indication: PLASMA CELL MYELOMA
     Dosage: 10.4 MG
     Route: 058
     Dates: start: 20170901, end: 20171222
  7. DUOPLAVIN [Concomitant]
     Active Substance: ASPIRIN\CLOPIDOGREL
  8. MOPRAL [Concomitant]
     Active Substance: OMEPRAZOLE
  9. ALLOPURINOL. [Suspect]
     Active Substance: ALLOPURINOL
     Route: 065
  10. CRESTOR [Concomitant]
     Active Substance: ROSUVASTATIN CALCIUM
  11. NEOFORDEX 40 MG, COMPRIME [Suspect]
     Active Substance: DEXAMETHASONE ACETATE
     Indication: PLASMA CELL MYELOMA
     Dosage: 160 MG
     Route: 048
     Dates: start: 20170901, end: 20171222
  12. OXYCONTIN [Concomitant]
     Active Substance: OXYCODONE HYDROCHLORIDE
     Dosage: PROLONGED?RELEASE FILM?COATED TABLETS

REACTIONS (3)
  - Oedema peripheral [Not Recovered/Not Resolved]
  - Venous thrombosis [Recovered/Resolved]
  - Rash [Recovered/Resolved]

NARRATIVE: CASE EVENT DATE: 201709
